FAERS Safety Report 8570272-0 (Version None)
Quarter: 2012Q3

REPORT INFORMATION
  Report Type: 
  Country: None (occurrence: None)
  Receive Date: 20120803
  Receipt Date: 20120720
  Transmission Date: 20120928
  Serious: Yes (Other)
  Sender: FDA-Public Use
  Company Number: CHPA2012US014042

PATIENT
  Age: 70 Year
  Sex: Female

DRUGS (6)
  1. EXCEDRIN EXTRA STRENGTH TABLETS [Suspect]
     Dosage: 2-4 DF, PRN
     Route: 048
     Dates: start: 19920101, end: 20111201
  2. NAPROXEN (ALEVE) [Concomitant]
     Dosage: UNK
  3. EXCEDRIN EXTRA STRENGTH TABLETS [Suspect]
     Indication: BACK PAIN
     Dosage: 1 TO 2 DF, BID TO TID, PRN
     Route: 048
     Dates: start: 19920101, end: 20111201
  4. IBUPROFEN (ADVIL) [Concomitant]
     Dosage: UNK
  5. ASPIRIN [Concomitant]
     Dosage: UNK
  6. TYLENOL (CAPLET) [Concomitant]
     Dosage: UNK

REACTIONS (3)
  - UNDERDOSE [None]
  - ASTHMA [None]
  - HYPERTENSION [None]
